FAERS Safety Report 9316129 (Version 2)
Quarter: 2013Q2

REPORT INFORMATION
  Report Type: Spontaneous
  Country: HU (occurrence: HU)
  Receive Date: 20130530
  Receipt Date: 20130607
  Transmission Date: 20140414
  Serious: Yes (Other)
  Sender: FDA-Public Use
  Company Number: HU-AMGEN-HUNSP2013037889

PATIENT
  Age: 47 Year
  Sex: Female

DRUGS (2)
  1. NPLATE [Suspect]
     Indication: IDIOPATHIC THROMBOCYTOPENIC PURPURA
     Dosage: UNK
     Dates: start: 201104
  2. MESTINON [Concomitant]

REACTIONS (3)
  - Therapeutic response decreased [Not Recovered/Not Resolved]
  - Contusion [Unknown]
  - Menorrhagia [Unknown]
